FAERS Safety Report 8331166 (Version 2)
Quarter: 2013Q2

REPORT INFORMATION
  Report Type: Spontaneous
  Country: US (occurrence: None)
  Receive Date: 20111130
  Receipt Date: 20130130
  Transmission Date: 20140414
  Serious: Yes (Hospitalization, Other)
  Sender: FDA-Public Use
  Company Number: US201002002853

PATIENT
  Age: 49 Year
  Sex: Female

DRUGS (9)
  1. BYETTA [Suspect]
     Dates: start: 200610, end: 2008
  2. TYLENOL /00020001/(PARACETAMOL) [Concomitant]
  3. DURAGESIC [Concomitant]
  4. NEXIUM [Concomitant]
  5. ANTACID (CALCIUM CARBONATE, GLYCINE) [Concomitant]
  6. CYMBALTA [Concomitant]
  7. ACTOS [Concomitant]
  8. NORCO [Concomitant]
  9. LISINOPRIL (LISINOPRIL) [Concomitant]

REACTIONS (3)
  - RENAL FAILURE [None]
  - LIGAMENT SPRAIN [None]
  - BLOOD GLUCOSE INCREASED [None]
